FAERS Safety Report 6080733-4 (Version None)
Quarter: 2009Q1

REPORT INFORMATION
  Report Type: 
  Country: None (occurrence: None)
  Receive Date: 20090217
  Receipt Date: 20090205
  Transmission Date: 20090719
  Serious: No
  Sender: FDA-Public Use
  Company Number: FR-ELI_LILLY_AND_COMPANY-FR200902001699

PATIENT
  Age: 56 Year
  Sex: Female

DRUGS (3)
  1. ZYPREXA [Suspect]
     Indication: DEPRESSION
     Dosage: 7.5 MG, DAILY (1/D)
     Route: 048
     Dates: start: 19980101
  2. ANTI-DIABETICS [Concomitant]
     Indication: DIABETES MELLITUS
     Dosage: UNK, UNK
     Route: 048
  3. LIPID MODIFYING AGENTS [Concomitant]
     Indication: DYSLIPIDAEMIA
     Dosage: UNK, UNK
     Route: 048

REACTIONS (2)
  - PLATELET COUNT ABNORMAL [None]
  - THROMBOCYTOPENIA [None]
